FAERS Safety Report 21934027 (Version 1)
Quarter: 2023Q1

REPORT INFORMATION
  Report Type: Other
  Country: CN (occurrence: None)
  Receive Date: 20230201
  Receipt Date: 20230201
  Transmission Date: 20230417
  Serious: Yes (Death, Other)
  Sender: FDA-Public Use
  Company Number: CN-ROCHE-3242657

PATIENT
  Age: 69 Year
  Sex: Male

DRUGS (1)
  1. TECENTRIQ [Suspect]
     Active Substance: ATEZOLIZUMAB
     Indication: Small cell lung cancer
     Route: 042
     Dates: start: 20221125

REACTIONS (4)
  - Erythema [Recovering/Resolving]
  - Erythema [Recovering/Resolving]
  - Brain neoplasm [Fatal]
  - Gait inability [Unknown]

NARRATIVE: CASE EVENT DATE: 20221206
